FAERS Safety Report 5097543-7 (Version None)
Quarter: 2006Q3

REPORT INFORMATION
  Report Type: 
  Country: None (occurrence: None)
  Receive Date: 20060901
  Receipt Date: 20060824
  Transmission Date: 20061208
  Serious: Yes (Other)
  Sender: FDA-Public Use
  Company Number: 14641

PATIENT
  Age: 3 Year
  Sex: Female

DRUGS (3)
  1. VINCRISTINE [Suspect]
     Indication: NEPHROBLASTOMA
  2. ACTINOMYCIN [Suspect]
     Indication: NEPHROBLASTOMA
  3. ADRIAMYCIN [Suspect]
     Indication: NEPHROBLASTOMA

REACTIONS (3)
  - DISEASE RECURRENCE [None]
  - HYPERPLASIA [None]
  - THYMUS ENLARGEMENT [None]
